FAERS Safety Report 10219733 (Version 1)
Quarter: 2014Q2

REPORT INFORMATION
  Report Type: Spontaneous
  Country: NO (occurrence: NO)
  Receive Date: 20140605
  Receipt Date: 20140605
  Transmission Date: 20141212
  Serious: Yes (Disabling)
  Sender: FDA-Public Use
  Company Number: NO-TEVA-484645ISR

PATIENT
  Age: 23 Year
  Sex: Male

DRUGS (18)
  1. METHOTREXATE SODIUM [Suspect]
     Indication: PANCYTOPENIA
  2. METHOTREXATE SODIUM [Suspect]
     Indication: T-CELL TYPE ACUTE LEUKAEMIA
     Dosage: ACCORDING TO NOPHO-ALL 2000 PROTOCOL
     Dates: start: 20070425, end: 2009
  3. L-ASPARAGINASE [Suspect]
     Indication: T-CELL TYPE ACUTE LEUKAEMIA
     Dosage: ACCORDING TO THE NOPHO-ALL 2000 PROTOCOL
     Route: 030
     Dates: start: 20070531, end: 20071031
  4. CYTOSAR [Suspect]
     Indication: T-CELL TYPE ACUTE LEUKAEMIA
     Dosage: ACCORDING TO THE NOPHO-ALL 2000 PROTOCOL
     Route: 042
     Dates: start: 20070713, end: 20080903
  5. CYTARABINE [Suspect]
     Indication: T-CELL TYPE ACUTE LEUKAEMIA
     Dosage: ACCORDING TO THE NOPHO-ALL 2000 PROTOCOL
     Route: 042
     Dates: start: 20070615, end: 20071214
  6. DOXORUBICIN HCL [Suspect]
     Indication: T-CELL TYPE ACUTE LEUKAEMIA
     Dosage: ACCORDING TO NOPHO-ALL 2000 PROTOCOL
     Route: 042
     Dates: start: 20070425, end: 20071114
  7. PURINETHOL [Suspect]
     Indication: PANCYTOPENIA
     Dosage: 150 MILLIGRAM DAILY; IN THE EVENING
     Dates: start: 20080924, end: 2009
  8. PURINETHOL [Suspect]
     Indication: T-CELL TYPE ACUTE LEUKAEMIA
     Dosage: DAY 1-45 OF THE NOPHO-ALL 2000 PROTOCOL
     Dates: start: 20080213
  9. DEXAMETHASONE [Suspect]
     Indication: T-CELL TYPE ACUTE LEUKAEMIA
     Dosage: ACCORDING TO THE NOPHO-ALL 2000 PROTOCOL
     Route: 048
     Dates: start: 20071031, end: 2009
  10. PREDNISOLON [Suspect]
     Indication: T-CELL TYPE ACUTE LEUKAEMIA
     Dosage: 100 MILLIGRAM DAILY;
     Dates: start: 20070420, end: 20070424
  11. PREDNISOLON [Suspect]
     Dosage: 65 MG WITH 50 MG CONT. FOR SIX WEEKS
     Dates: start: 20070425
  12. CYCLOPHOSPHAMIDE [Suspect]
     Indication: T-CELL TYPE ACUTE LEUKAEMIA
     Dosage: ACCORDING TO THE NOPHO-ALL 2000 PROTOCOL
     Route: 042
     Dates: start: 20070613, end: 20070711
  13. CARMUSTINE [Suspect]
     Indication: T-CELL TYPE ACUTE LEUKAEMIA
     Dosage: ACOORDING TO THE NOPHO-ALL 2000 PROTOCOL
     Dates: start: 20080630, end: 20080825
  14. ONCOVIN [Suspect]
     Indication: T-CELL TYPE ACUTE LEUKAEMIA
     Dosage: ACCORDING TO THE NOPHO-ALL 2000 PROTOCOL
     Route: 042
     Dates: start: 20070425, end: 2009
  15. DAUNORUBICIN [Suspect]
     Indication: T-CELL TYPE ACUTE LEUKAEMIA
     Dosage: ACCORDING TO THE NOPHO-ALL 2000 PROTOCOL
     Route: 042
     Dates: start: 20080616, end: 20080811
  16. HYDROXYUREA [Suspect]
     Indication: T-CELL TYPE ACUTE LEUKAEMIA
     Dosage: 5000 MILLIGRAM DAILY; 15-18 OF FIRST LSA2L2 CYCLE
     Dates: start: 20080611, end: 20080614
  17. VINCRISTINE [Suspect]
     Indication: T-CELL TYPE ACUTE LEUKAEMIA
     Dosage: 2 MILLIGRAM DAILY; (DAY 47 OF FIRST LSA2L2 CYCLE)
     Route: 042
     Dates: start: 20080713, end: 20080713
  18. LANVIS [Suspect]
     Indication: T-CELL TYPE ACUTE LEUKAEMIA
     Dosage: ACCORDING TO THE NOPHO-ALL 2000 PROTOCOL
     Route: 048
     Dates: start: 20070613, end: 20080723

REACTIONS (2)
  - Deafness [Not Recovered/Not Resolved]
  - Osteonecrosis [Not Recovered/Not Resolved]
